FAERS Safety Report 25383780 (Version 1)
Quarter: 2025Q2

REPORT INFORMATION
  Report Type: Spontaneous
  Country: AU (occurrence: AU)
  Receive Date: 20250602
  Receipt Date: 20250602
  Transmission Date: 20250717
  Serious: Yes (Hospitalization)
  Sender: AMGEN
  Company Number: AU-AMGEN-AUSCT2025106083

PATIENT
  Age: 52 Year
  Sex: Female

DRUGS (6)
  1. TRASTUZUMAB [Suspect]
     Active Substance: TRASTUZUMAB
     Indication: Hormone receptor negative HER2 positive breast cancer
     Dosage: 344 MILLIGRAM, Q3WK
     Route: 040
     Dates: start: 20241021, end: 20250317
  2. TUCATINIB [Suspect]
     Active Substance: TUCATINIB
     Indication: Hormone receptor negative HER2 positive breast cancer
     Dosage: 250 MILLIGRAM, BID (2X/DAY)
     Route: 048
     Dates: start: 20241021
  3. TUCATINIB [Suspect]
     Active Substance: TUCATINIB
     Dosage: 250 MILLIGRAM, BID (2X/DAY)
     Route: 048
     Dates: end: 20250306
  4. TUCATINIB [Suspect]
     Active Substance: TUCATINIB
     Dosage: 150 MILLIGRAM, BID (2X/DAY)
     Route: 065
     Dates: start: 20250429
  5. PEMBROLIZUMAB [Suspect]
     Active Substance: PEMBROLIZUMAB
     Indication: Hormone receptor negative HER2 positive breast cancer
     Dosage: 200 MILLIGRAM, Q3WK
     Route: 040
     Dates: start: 20241021, end: 20241111
  6. ONDANSETRON [Concomitant]
     Active Substance: ONDANSETRON
     Route: 065
     Dates: start: 20250225, end: 20250306

REACTIONS (1)
  - Hepatic function abnormal [Recovering/Resolving]

NARRATIVE: CASE EVENT DATE: 20250306
